FAERS Safety Report 8531446-8 (Version None)
Quarter: 2012Q3

REPORT INFORMATION
  Report Type: 
  Country: None (occurrence: None)
  Receive Date: 20120723
  Receipt Date: 20120713
  Transmission Date: 20120928
  Serious: Yes (Other)
  Sender: FDA-Public Use
  Company Number: ES-ABBOTT-12P-144-0956386-01

PATIENT
  Age: 58 Year
  Sex: Male

DRUGS (8)
  1. HUMIRA [Suspect]
     Indication: CROHN'S DISEASE
     Dosage: 160 MG BASELINE/80 MG WEEK 2
     Route: 058
     Dates: start: 20070907
  2. MESALAZINA [Concomitant]
     Indication: CROHN'S DISEASE
     Route: 048
  3. INFLIXIMAB [Concomitant]
     Indication: CROHN'S DISEASE
     Dosage: DAY 0, DAY 15 THEN EVERY TWO MONTHS
     Dates: start: 20090710
  4. AZATHIOPRINE [Concomitant]
     Indication: CROHN'S DISEASE
     Route: 048
  5. MERCAPTOPURINE [Concomitant]
     Indication: CROHN'S DISEASE
  6. HUMIRA [Suspect]
     Route: 058
     Dates: end: 20090630
  7. NATALIZUMAB [Concomitant]
     Indication: CROHN'S DISEASE
     Dates: start: 20100901, end: 20110101
  8. PROPRANOLOL HYDROCHLORIDE [Concomitant]
     Indication: HEADACHE
     Dates: start: 20100401

REACTIONS (2)
  - COLOSTOMY [None]
  - PROCTOTOMY [None]
